FAERS Safety Report 18158779 (Version 3)
Quarter: 2021Q2

REPORT INFORMATION
  Report Type: Spontaneous
  Country: US (occurrence: US)
  Receive Date: 20200817
  Receipt Date: 20210413
  Transmission Date: 20210717
  Serious: Yes (Other)
  Sender: FDA-Public Use
  Company Number: US-GILEAD-2020-0489748

PATIENT
  Sex: Male
  Weight: 74.83 kg

DRUGS (52)
  1. CHANTIX [Concomitant]
     Active Substance: VARENICLINE TARTRATE
  2. LEXIVA [Concomitant]
     Active Substance: FOSAMPRENAVIR CALCIUM
  3. NORVIR [Concomitant]
     Active Substance: RITONAVIR
  4. CLINDAMYCIN. [Concomitant]
     Active Substance: CLINDAMYCIN
  5. FLUCONAZOLE. [Concomitant]
     Active Substance: FLUCONAZOLE
  6. MELOXICAM. [Concomitant]
     Active Substance: MELOXICAM
  7. TRAMADOL. [Concomitant]
     Active Substance: TRAMADOL
  8. ZYPREXA [Concomitant]
     Active Substance: OLANZAPINE
  9. ZIAGEN [Concomitant]
     Active Substance: ABACAVIR SULFATE
  10. NAPROXEN. [Concomitant]
     Active Substance: NAPROXEN
  11. PRAVASTATIN. [Concomitant]
     Active Substance: PRAVASTATIN
  12. VITAMIN D2 [Concomitant]
     Active Substance: ERGOCALCIFEROL
  13. VIREAD [Suspect]
     Active Substance: TENOFOVIR DISOPROXIL FUMARATE
     Indication: HIV INFECTION
     Dosage: UNK
     Route: 048
     Dates: start: 2006
  14. BIKTARVY [Concomitant]
     Active Substance: BICTEGRAVIR SODIUM\EMTRICITABINE\TENOFOVIR ALAFENAMIDE FUMARATE
  15. KALETRA [Concomitant]
     Active Substance: LOPINAVIR\RITONAVIR
  16. VIDEX [Concomitant]
     Active Substance: DIDANOSINE
  17. CIPROFLOXACIN. [Concomitant]
     Active Substance: CIPROFLOXACIN
  18. DAPSONE. [Concomitant]
     Active Substance: DAPSONE
  19. IBUPROFEN. [Concomitant]
     Active Substance: IBUPROFEN
  20. METAMUCIL THERAPY FOR REGULARITY [Concomitant]
     Active Substance: PSYLLIUM HUSK
  21. METRONIDAZOLE. [Concomitant]
     Active Substance: METRONIDAZOLE
  22. OLANZAPINE. [Concomitant]
     Active Substance: OLANZAPINE
  23. TIZANIDINE HCL [Concomitant]
     Active Substance: TIZANIDINE HYDROCHLORIDE
  24. CORTISONE [Concomitant]
     Active Substance: CORTISONE
  25. DOXYCYCLINE. [Concomitant]
     Active Substance: DOXYCYCLINE
  26. FUROSEMIDE. [Concomitant]
     Active Substance: FUROSEMIDE
  27. NABUMETONE. [Concomitant]
     Active Substance: NABUMETONE
  28. RISPERIDONE. [Concomitant]
     Active Substance: RISPERIDONE
  29. MULTIVITAMINS;MINERALS [Concomitant]
     Active Substance: MINERALS\VITAMINS
  30. REYATAZ [Concomitant]
     Active Substance: ATAZANAVIR SULFATE
  31. ATORVASTATIN [Concomitant]
     Active Substance: ATORVASTATIN
  32. CYCLOBENZAPRINE. [Concomitant]
     Active Substance: CYCLOBENZAPRINE
  33. FLAGYL [METRONIDAZOLE;NYSTATIN] [Concomitant]
  34. KETOPROFEN. [Concomitant]
     Active Substance: KETOPROFEN
  35. METOPROLOL TARTRATE. [Concomitant]
     Active Substance: METOPROLOL TARTRATE
  36. QUETIAPINE FUMARATE. [Concomitant]
     Active Substance: QUETIAPINE FUMARATE
  37. RALTEGRAVIR. [Concomitant]
     Active Substance: RALTEGRAVIR
  38. TENOFOVIR [Concomitant]
     Active Substance: TENOFOVIR
  39. TRUVADA [Suspect]
     Active Substance: EMTRICITABINE\TENOFOVIR DISOPROXIL FUMARATE
     Indication: HIV INFECTION
     Dosage: UNK
     Route: 048
     Dates: start: 20100702, end: 20161026
  40. DESCOVY [Concomitant]
     Active Substance: EMTRICITABINE\TENOFOVIR ALAFENAMIDE FUMARATE
  41. ISENTRESS [Concomitant]
     Active Substance: RALTEGRAVIR POTASSIUM
  42. TIVICAY [Concomitant]
     Active Substance: DOLUTEGRAVIR SODIUM
  43. AZITHROMYCIN ANHYDROUS. [Concomitant]
     Active Substance: AZITHROMYCIN ANHYDROUS
  44. HYDROCODONE BITARTRATE AND ACETAMINOPHEN [Concomitant]
     Active Substance: ACETAMINOPHEN\HYDROCODONE BITARTRATE
  45. LEVOFLOXACIN. [Concomitant]
     Active Substance: LEVOFLOXACIN
  46. OXYCODONE AND ACETAMINOPHEN [Concomitant]
     Active Substance: ACETAMINOPHEN\OXYCODONE HYDROCHLORIDE
  47. PREZISTA [Concomitant]
     Active Substance: DARUNAVIR ETHANOLATE
  48. TRIZIVIR [Concomitant]
     Active Substance: ABACAVIR SULFATE\LAMIVUDINE\ZIDOVUDINE
  49. DOCUSATE SODIUM. [Concomitant]
     Active Substance: DOCUSATE SODIUM
  50. GABAPENTIN. [Concomitant]
     Active Substance: GABAPENTIN
  51. LAMICTAL [Concomitant]
     Active Substance: LAMOTRIGINE
  52. VALPROIC ACID. [Concomitant]
     Active Substance: VALPROIC ACID

REACTIONS (5)
  - Emotional distress [Recovered/Resolved]
  - Anhedonia [Unknown]
  - Pain [Recovered/Resolved]
  - Osteoporosis [Recovered/Resolved]
  - Anxiety [Unknown]

NARRATIVE: CASE EVENT DATE: 2009
